FAERS Safety Report 13943919 (Version 1)
Quarter: 2017Q3

REPORT INFORMATION
  Report Type: Spontaneous
  Country: US (occurrence: US)
  Receive Date: 20170907
  Receipt Date: 20170907
  Transmission Date: 20171128
  Serious: No
  Sender: FDA-Public Use
  Company Number: US-ROCHE-1395738

PATIENT
  Sex: Female

DRUGS (4)
  1. RITUXAN [Suspect]
     Active Substance: RITUXIMAB
     Indication: RHEUMATOID ARTHRITIS
     Route: 042
     Dates: start: 201404
  2. PREDNISONE. [Concomitant]
     Active Substance: PREDNISONE
  3. CELLCEPT [Suspect]
     Active Substance: MYCOPHENOLATE MOFETIL\MYCOPHENOLATE MOFETIL HYDROCHLORIDE
     Indication: PRODUCT USED FOR UNKNOWN INDICATION
     Route: 065
  4. OXYGEN. [Concomitant]
     Active Substance: OXYGEN
     Indication: SYSTEMIC SCLEROSIS PULMONARY

REACTIONS (12)
  - Feeling abnormal [Not Recovered/Not Resolved]
  - Ocular hyperaemia [Recovered/Resolved]
  - Dyspnoea [Not Recovered/Not Resolved]
  - Chills [Not Recovered/Not Resolved]
  - Pyrexia [Not Recovered/Not Resolved]
  - Eye pain [Unknown]
  - Eye swelling [Recovering/Resolving]
  - Asthenia [Not Recovered/Not Resolved]
  - Visual impairment [Recovered/Resolved]
  - Cough [Not Recovered/Not Resolved]
  - Ocular discomfort [Recovering/Resolving]
  - Migraine [Recovering/Resolving]
